FAERS Safety Report 4653063-2 (Version None)
Quarter: 2005Q2

REPORT INFORMATION
  Report Type: 
  Country: None (occurrence: None)
  Receive Date: 20050505
  Receipt Date: 20050228
  Transmission Date: 20051028
  Serious: Yes (Hospitalization)
  Sender: FDA-Public Use
  Company Number: US-MERCK-0503USA00068

PATIENT
  Age: 61 Year
  Sex: Female
  Weight: 86 kg

DRUGS (1)
  1. VIOXX [Suspect]
     Route: 048
     Dates: start: 20040701, end: 20040701

REACTIONS (2)
  - EXTRASYSTOLES [None]
  - TACHYCARDIA [None]
